FAERS Safety Report 5388630-4 (Version None)
Quarter: 2007Q3

REPORT INFORMATION
  Report Type: 
  Country: None (occurrence: None)
  Receive Date: 20070716
  Receipt Date: 20070711
  Transmission Date: 20080115
  Serious: Yes (Hospitalization)
  Sender: FDA-Public Use
  Company Number: TR-ROXANE LABORATORIES, INC-2007-BP-17191RO

PATIENT
  Age: 27 Year
  Sex: Female

DRUGS (1)
  1. LITHIUM CARBONATE [Suspect]
     Indication: BIPOLAR I DISORDER
     Dosage: 300 MG X 150 INTENTIONAL O.D.
     Route: 048

REACTIONS (4)
  - DIARRHOEA [None]
  - INTENTIONAL OVERDOSE [None]
  - NAUSEA [None]
  - THERAPEUTIC AGENT TOXICITY [None]
